FAERS Safety Report 7679934-0 (Version None)
Quarter: 2011Q3

REPORT INFORMATION
  Report Type: 
  Country: None (occurrence: None)
  Receive Date: 20110809
  Receipt Date: 20110729
  Transmission Date: 20111222
  Serious: Yes (Hospitalization, Other)
  Sender: FDA-Public Use
  Company Number: 2010SP042967

PATIENT
  Age: 39 Year
  Sex: Female
  Weight: 65.318 kg

DRUGS (3)
  1. ADVIL LIQUI-GELS [Concomitant]
  2. NUVARING [Suspect]
     Indication: PRODUCT USED FOR UNKNOWN INDICATION
     Dates: start: 20030101, end: 20080801
  3. LEXAPRO [Concomitant]

REACTIONS (43)
  - POST PROCEDURAL COMPLICATION [None]
  - RESPIRATORY DISTRESS [None]
  - BLOOD CULTURE POSITIVE [None]
  - HYPERTENSION [None]
  - NECK PAIN [None]
  - PAIN IN EXTREMITY [None]
  - CEREBRAL INFARCTION [None]
  - CONVULSION [None]
  - HYPOTENSION [None]
  - NAUSEA [None]
  - DIZZINESS [None]
  - THROMBOSIS [None]
  - MITRAL VALVE PROLAPSE [None]
  - COAGULOPATHY [None]
  - MENTAL STATUS CHANGES [None]
  - CAROTID ARTERY DISSECTION [None]
  - PLEURAL EFFUSION [None]
  - DEVICE RELATED SEPSIS [None]
  - GALLBLADDER DISORDER [None]
  - EMBOLIC STROKE [None]
  - CEREBRAL ISCHAEMIA [None]
  - CEREBRAL ARTERY OCCLUSION [None]
  - CONSTIPATION [None]
  - BLOOD GLUCOSE INCREASED [None]
  - ANAEMIA [None]
  - LACERATION [None]
  - BASAL GANGLIA HAEMORRHAGE [None]
  - SINUS TACHYCARDIA [None]
  - ASTHENIA [None]
  - BACK PAIN [None]
  - HYPOKALAEMIA [None]
  - PERICARDIAL EFFUSION [None]
  - PULMONARY EMBOLISM [None]
  - HEMIPARESIS [None]
  - VENTRICULAR TACHYCARDIA [None]
  - CARDIOGENIC SHOCK [None]
  - HYPOMAGNESAEMIA [None]
  - MITRAL VALVE INCOMPETENCE [None]
  - HEAD INJURY [None]
  - CHEST PAIN [None]
  - ABDOMINAL DISCOMFORT [None]
  - VOMITING [None]
  - MUSCULOSKELETAL PAIN [None]
